FAERS Safety Report 4294128-7 (Version None)
Quarter: 2004Q1

REPORT INFORMATION
  Report Type: 
  Country: None (occurrence: None)
  Receive Date: 20040212
  Receipt Date: 20040212
  Transmission Date: 20041129
  Serious: No
  Sender: FDA-Public Use
  Company Number: None

PATIENT
  Age: 83 Year
  Sex: Female
  Weight: 63.5 kg

DRUGS (1)
  1. CEREBYX [Suspect]
     Indication: CONVULSION
     Dosage: 1 GM IVPB X 1
     Route: 042
     Dates: start: 20031226

REACTIONS (1)
  - TINNITUS [None]
